FAERS Safety Report 7580471-2 (Version None)
Quarter: 2011Q2

REPORT INFORMATION
  Report Type: 
  Country: None (occurrence: None)
  Receive Date: 20110629
  Receipt Date: 20110608
  Transmission Date: 20111010
  Serious: Yes (Hospitalization, Congenital Anomaly)
  Sender: FDA-Public Use
  Company Number: A0921492A

PATIENT
  Sex: Female
  Weight: 3.2 kg

DRUGS (1)
  1. PAXIL [Suspect]
     Indication: DEPRESSION
     Dosage: 40MG PER DAY
     Route: 064
     Dates: start: 19980101, end: 20020101

REACTIONS (2)
  - DRUG EXPOSURE DURING PREGNANCY [None]
  - CRANIOSYNOSTOSIS [None]
